FAERS Safety Report 10889539 (Version 1)
Quarter: 2015Q1

REPORT INFORMATION
  Report Type: Spontaneous
  Country: US (occurrence: US)
  Receive Date: 20150305
  Receipt Date: 20150305
  Transmission Date: 20150721
  Serious: No
  Sender: FDA-Public Use
  Company Number: US-GLAXOSMITHKLINE-US2015013379

PATIENT
  Age: 18 Year
  Sex: Female

DRUGS (1)
  1. LAMOTRIGINE. [Suspect]
     Active Substance: LAMOTRIGINE
     Indication: EPILEPSY
     Dosage: UNK, U
     Route: 065
     Dates: start: 201005, end: 201009

REACTIONS (3)
  - Hypoaesthesia oral [Recovered/Resolved]
  - Hypersensitivity [Recovered/Resolved]
  - Pharyngeal hypoaesthesia [Recovered/Resolved]

NARRATIVE: CASE EVENT DATE: 201009
